FAERS Safety Report 16663611 (Version 1)
Quarter: 2019Q3

REPORT INFORMATION
  Report Type: Spontaneous
  Country: US (occurrence: US)
  Receive Date: 20190619
  Receipt Date: 20190619
  Transmission Date: 20191004
  Serious: Yes (Other)
  Sender: FDA-Public Use
  Company Number: None

PATIENT
  Age: 34 Year
  Sex: Female

DRUGS (13)
  1. HUMIRA [Suspect]
     Active Substance: ADALIMUMAB
     Indication: HIDRADENITIS
     Route: 058
     Dates: start: 20170112
  2. ASA [Concomitant]
     Active Substance: ASPIRIN
  3. NEURONTIN [Concomitant]
     Active Substance: GABAPENTIN
  4. GABAPENTIN. [Concomitant]
     Active Substance: GABAPENTIN
  5. HYDROCHLOROTH [Concomitant]
     Active Substance: HYDROCHLOROTHIAZIDE
  6. LUNESTA [Concomitant]
     Active Substance: ESZOPICLONE
  7. MELOXICAM. [Concomitant]
     Active Substance: MELOXICAM
  8. CHANTIX [Concomitant]
     Active Substance: VARENICLINE TARTRATE
  9. POT CHLORIDE [Concomitant]
     Active Substance: POTASSIUM CHLORIDE
  10. VENLAFAXINE [Concomitant]
     Active Substance: VENLAFAXINE HYDROCHLORIDE
  11. MITRAZXAPINE [Concomitant]
  12. ADVIL [Concomitant]
     Active Substance: IBUPROFEN
  13. ATORVASTATIN [Concomitant]
     Active Substance: ATORVASTATIN

REACTIONS (1)
  - Cerebrovascular accident [None]
